FAERS Safety Report 7895867-9 (Version None)
Quarter: 2011Q4

REPORT INFORMATION
  Report Type: 
  Country: None (occurrence: None)
  Receive Date: 20111102
  Receipt Date: 20111019
  Transmission Date: 20120403
  Serious: Yes (Hospitalization, Other)
  Sender: FDA-Public Use
  Company Number: US-2011-10755

PATIENT
  Age: 42 Year
  Sex: Male

DRUGS (8)
  1. ACYCLOVIR [Concomitant]
  2. ATENOLOL [Concomitant]
  3. ETOPOSIDE [Concomitant]
  4. ZOFRAN [Concomitant]
  5. BUSULFAN [Suspect]
     Indication: LYMPHOMA
     Dosage: 76 MG MILLIGRAM(S), DAILY DOSE, INTRAVENOUS; 367 MG MILLIGRAM(S), DAILY DOSE, INTRAVENOUS
     Route: 042
     Dates: start: 20110623, end: 20110626
  6. BUSULFAN [Suspect]
     Indication: LYMPHOMA
     Dosage: 76 MG MILLIGRAM(S), DAILY DOSE, INTRAVENOUS; 367 MG MILLIGRAM(S), DAILY DOSE, INTRAVENOUS
     Route: 042
     Dates: start: 20110621, end: 20110621
  7. CYCLOPHOSPHAMIDE [Concomitant]
  8. VICODIN [Concomitant]

REACTIONS (4)
  - LETHARGY [None]
  - FATIGUE [None]
  - RHINORRHOEA [None]
  - PNEUMONITIS [None]
